FAERS Safety Report 5212128-7 (Version None)
Quarter: 2007Q1

REPORT INFORMATION
  Report Type: 
  Country: None (occurrence: None)
  Receive Date: 20070118
  Receipt Date: 20070109
  Transmission Date: 20070707
  Serious: Yes (Hospitalization, Other)
  Sender: FDA-Public Use
  Company Number: US-PURDUE-USA_2007_0026105

PATIENT
  Age: 55 Year
  Sex: Male
  Weight: 104 kg

DRUGS (14)
  1. OXYCONTIN [Suspect]
     Indication: PAIN
     Dosage: 80 MG, BID
     Route: 065
     Dates: start: 20020101
  2. SULAR [Concomitant]
  3. TRICOR [Concomitant]
  4. CRESTOR [Concomitant]
  5. XANAX [Concomitant]
     Dosage: 1 MG, TID
  6. ACCUPRIL [Concomitant]
  7. PLAVIX [Concomitant]
  8. THIAZIDE DERIVATIVES [Concomitant]
  9. ASPIRIN [Concomitant]
  10. NITROGLYCERIN [Concomitant]
     Dosage: UNK, PRN
     Route: 060
  11. TYLOX [Concomitant]
     Indication: BREAKTHROUGH PAIN
     Dosage: UNK, PRN
  12. TORSEMIDE [Concomitant]
  13. ZETIA [Concomitant]
  14. NEURONTIN [Concomitant]

REACTIONS (9)
  - AMNESIA [None]
  - BACK PAIN [None]
  - CHEST PAIN [None]
  - HYPOVENTILATION [None]
  - LOSS OF CONSCIOUSNESS [None]
  - MYOCARDIAL INFARCTION [None]
  - OEDEMA PERIPHERAL [None]
  - SOMNOLENCE [None]
  - WRONG TECHNIQUE IN DRUG USAGE PROCESS [None]
